FAERS Safety Report 21344681 (Version 4)
Quarter: 2025Q3

REPORT INFORMATION
  Report Type: Spontaneous
  Country: US (occurrence: US)
  Receive Date: 20220916
  Receipt Date: 20250822
  Transmission Date: 20251021
  Serious: No
  Sender: SANOFI AVENTIS
  Company Number: US-SA-SAC20220912001531

PATIENT
  Age: 16 Year
  Sex: Male
  Weight: 62.05 kg

DRUGS (2)
  1. DUPIXENT [Suspect]
     Active Substance: DUPILUMAB
     Indication: Dermatitis atopic
     Dosage: 300 MG, QOW
     Route: 058
  2. DUPIXENT [Suspect]
     Active Substance: DUPILUMAB
     Dosage: 300 MG, QW
     Route: 058

REACTIONS (6)
  - Dermatitis atopic [Unknown]
  - Therapeutic response shortened [Unknown]
  - Therapeutic response decreased [Unknown]
  - Off label use [Unknown]
  - Dry eye [Unknown]
  - Eye irritation [Unknown]
